FAERS Safety Report 25364618 (Version 1)
Quarter: 2025Q2

REPORT INFORMATION
  Report Type: Spontaneous
  Country: US (occurrence: US)
  Receive Date: 20250527
  Receipt Date: 20250527
  Transmission Date: 20250717
  Serious: Yes (Other)
  Sender: SANOFI AVENTIS
  Company Number: US-SANOFI-02530452

PATIENT
  Age: 77 Year
  Sex: Male

DRUGS (1)
  1. LANTUS [Suspect]
     Active Substance: INSULIN GLARGINE
     Indication: Diabetes mellitus
     Dosage: 30 IU, QD
     Route: 058
     Dates: start: 2023

REACTIONS (5)
  - Femur fracture [Recovered/Resolved]
  - Limb deformity [Recovered/Resolved]
  - Malaise [Not Recovered/Not Resolved]
  - Walking aid user [Not Recovered/Not Resolved]
  - Gait disturbance [Not Recovered/Not Resolved]

NARRATIVE: CASE EVENT DATE: 20250101
